FAERS Safety Report 5885342-5 (Version None)
Quarter: 2008Q3

REPORT INFORMATION
  Report Type: 
  Country: None (occurrence: None)
  Receive Date: 20080916
  Receipt Date: 20080904
  Transmission Date: 20090109
  Serious: Yes (Other)
  Sender: FDA-Public Use
  Company Number: US-PFIZER INC-2008074749

PATIENT
  Sex: Female
  Weight: 69.09 kg

DRUGS (12)
  1. LYRICA [Suspect]
     Indication: NEUROPATHY PERIPHERAL
     Dosage: DAILY DOSE:100MG
     Dates: start: 20080801
  2. LYRICA [Suspect]
     Indication: NEURALGIA
  3. TOPROL-XL [Suspect]
  4. HYDROCODONE BITARTRATE [Concomitant]
  5. LORAZEPAM [Concomitant]
  6. CELEBREX [Concomitant]
  7. NEXIUM [Concomitant]
  8. ASPIRIN [Concomitant]
  9. CRESTOR [Concomitant]
  10. QUINAPRIL [Concomitant]
  11. SYNTHROID [Concomitant]
  12. CENTRUM SILVER [Concomitant]

REACTIONS (4)
  - FALL [None]
  - GAIT DISTURBANCE [None]
  - MYOCARDIAL INFARCTION [None]
  - VISION BLURRED [None]
